FAERS Safety Report 5908081-0 (Version None)
Quarter: 2008Q4

REPORT INFORMATION
  Report Type: 
  Country: None (occurrence: None)
  Receive Date: 20081003
  Receipt Date: 20080921
  Transmission Date: 20090506
  Serious: Yes (Other)
  Sender: FDA-Public Use
  Company Number: US-PFIZER INC-2008080364

PATIENT
  Age: 35 Year
  Sex: Female
  Weight: 127 kg

DRUGS (1)
  1. CHANTIX [Suspect]

REACTIONS (1)
  - HOMICIDAL IDEATION [None]
